FAERS Safety Report 4977036-5 (Version None)
Quarter: 2006Q2

REPORT INFORMATION
  Report Type: 
  Country: None (occurrence: None)
  Receive Date: 20060419
  Receipt Date: 20060407
  Transmission Date: 20061013
  Serious: Yes (Hospitalization)
  Sender: FDA-Public Use
  Company Number: NL-NOVOPROD-252323

PATIENT
  Age: 56 Year
  Sex: Female

DRUGS (2)
  1. ACTIVELLE [Suspect]
     Indication: HORMONE REPLACEMENT THERAPY
     Dosage: 1 UNK, QD
     Dates: start: 20030410, end: 20040214
  2. PARACETAMOL [Concomitant]

REACTIONS (1)
  - CHOLELITHIASIS [None]
